FAERS Safety Report 8861748 (Version 1)
Quarter: 2012Q4

REPORT INFORMATION
  Report Type: 
  Country: US (occurrence: US)
  Receive Date: 20121025
  Receipt Date: 20121025
  Transmission Date: 20130627
  Serious: No
  Sender: FDA-Public Use
  Company Number: US-AMGEN-USASP2012020767

PATIENT
  Age: 66 Year
  Sex: Female
  Weight: 68.03 kg

DRUGS (9)
  1. ENBREL [Suspect]
     Indication: PRODUCT USED FOR UNKNOWN INDICATION
     Dosage: 50 mg, qwk
     Route: 058
  2. ATIVAN [Concomitant]
     Dosage: 0.5 mg, UNK
  3. PANTOPRAZOLE [Concomitant]
     Dosage: 20 mg, UNK
  4. METFORMIN [Concomitant]
     Dosage: 500 mg, UNK
  5. CRESTOR [Concomitant]
     Dosage: 10 mg, UNK
  6. CALCIUM [Concomitant]
  7. MULTIVITAMIN                       /00097801/ [Concomitant]
     Dosage: UNK
  8. TYLENOL /00020001/ [Concomitant]
     Dosage: 325 mg, UNK
  9. PROBIOTIC [Concomitant]

REACTIONS (3)
  - Abdominal pain upper [Unknown]
  - Vomiting [Unknown]
  - Diarrhoea [Unknown]
